FAERS Safety Report 23886376 (Version 2)
Quarter: 2024Q2

REPORT INFORMATION
  Report Type: Report from Study
  Country: DE (occurrence: DE)
  Receive Date: 20240522
  Receipt Date: 20240530
  Transmission Date: 20240716
  Serious: Yes (Death, Hospitalization, Other)
  Sender: FDA-Public Use
  Company Number: DE-PFM-2024-02819

PATIENT
  Sex: Female
  Weight: 48 kg

DRUGS (17)
  1. ALBUTEROL [Suspect]
     Active Substance: ALBUTEROL
     Indication: Asthma
     Dosage: 1 HUB AS NEEDED
     Route: 055
  2. CETUXIMAB [Suspect]
     Active Substance: CETUXIMAB
     Indication: Colorectal cancer
     Dosage: 250 MILLIGRAM/SQ. METER, WEEKLY
     Route: 042
     Dates: start: 20240301
  3. ENCORAFENIB [Suspect]
     Active Substance: ENCORAFENIB
     Indication: Colorectal cancer
     Dosage: 300 MILLIGRAM, QD
     Route: 048
     Dates: start: 20240301, end: 20240426
  4. XARELTO [Concomitant]
     Active Substance: RIVAROXABAN
     Indication: Prophylaxis
     Dosage: 15 MILLIGRAM, BID (2/DAY)
     Route: 048
     Dates: start: 20240214, end: 20240306
  5. XARELTO [Concomitant]
     Active Substance: RIVAROXABAN
     Dosage: 20 MILLIGRAM, QD
     Route: 048
     Dates: start: 20240307
  6. BISOPROLOL [Concomitant]
     Active Substance: BISOPROLOL\BISOPROLOL FUMARATE
     Indication: Tachycardia
     Dosage: 2.5 MILLIGRAM
     Route: 048
     Dates: start: 20240227
  7. TORSEMIDE [Concomitant]
     Active Substance: TORSEMIDE
     Indication: Pleural effusion
     Dosage: 10 MILLIGRAM, QD
     Route: 048
     Dates: start: 20240219
  8. Nutrinidrink multi fibre [Concomitant]
     Indication: Cachexia
     Dosage: 600 MILLILITER, QD (200 ML, TID (3/DAY))
     Route: 048
     Dates: start: 20240227
  9. DOXYCYCLINE [Concomitant]
     Active Substance: DOXYCYCLINE\DOXYCYCLINE HYCLATE
     Indication: Prophylaxis
     Dosage: 100 MILLIGRAM, QD
     Route: 048
     Dates: start: 20240301
  10. BENZYDAMINE HYDROCHLORIDE [Concomitant]
     Active Substance: BENZYDAMINE HYDROCHLORIDE
     Indication: Prophylaxis
     Dosage: 1 MOUTHWASH FIVE TIMES A DAY
     Route: 061
     Dates: start: 20240227
  11. TRAMADOL [Concomitant]
     Active Substance: TRAMADOL\TRAMADOL HYDROCHLORIDE
     Indication: Tumour pain
     Dosage: 20 DROPS, BID (2/DAY)
     Route: 048
     Dates: start: 20240227
  12. FORMOTEROL [Concomitant]
     Active Substance: FORMOTEROL
     Indication: Asthma
     Dosage: 1 HUB TWICE DAILY
     Route: 055
     Dates: start: 20240227
  13. METOCLOPRAMIDE [Concomitant]
     Active Substance: METOCLOPRAMIDE
     Indication: Decreased appetite
     Dosage: 30 MILLIGRAM, QD (10 MG, TID (3/DAY))
     Route: 048
     Dates: start: 20240227
  14. BECLOMETHASONE DIPROPIONATE [Concomitant]
     Active Substance: BECLOMETHASONE DIPROPIONATE
     Indication: Asthma
     Dosage: 1 HUB TWICE DAILY
     Route: 055
     Dates: start: 20240227
  15. PANTOPRAZOLE SODIUM [Concomitant]
     Active Substance: PANTOPRAZOLE SODIUM
     Indication: Gastrooesophageal reflux disease
     Dosage: 40 MILLIGRAM, QD
     Route: 048
     Dates: start: 20240216
  16. ACETAMINOPHEN [Concomitant]
     Active Substance: ACETAMINOPHEN
     Indication: Tumour pain
     Dosage: 500 MILLIGRAM, PRN
     Route: 048
     Dates: start: 20240227
  17. AMINO ACIDS\DEXTROSE\ELECTROLYTES NOS [Concomitant]
     Active Substance: AMINO ACIDS\DEXTROSE\ELECTROLYTES NOS
     Indication: Cachexia
     Dosage: 1875 MILLILITER, QD
     Route: 042
     Dates: start: 20240227

REACTIONS (2)
  - Bladder transitional cell carcinoma [Fatal]
  - Urosepsis [Not Recovered/Not Resolved]

NARRATIVE: CASE EVENT DATE: 20240501
